FAERS Safety Report 7808712-4 (Version None)
Quarter: 2011Q4

REPORT INFORMATION
  Report Type: 
  Country: None (occurrence: None)
  Receive Date: 20111012
  Receipt Date: 20111007
  Transmission Date: 20120403
  Serious: Yes (Other)
  Sender: FDA-Public Use
  Company Number: FR-US-EMD SERONO, INC.-7087590

PATIENT
  Age: 28 Year
  Sex: Female

DRUGS (1)
  1. REBIF [Suspect]
     Indication: MULTIPLE SCLEROSIS
     Dosage: TITRATION PERFORMED
     Route: 058

REACTIONS (2)
  - NEPHROTIC SYNDROME [None]
  - BLOOD CREATININE INCREASED [None]
